FAERS Safety Report 8734602 (Version 3)
Quarter: 2014Q2

REPORT INFORMATION
  Report Type: Spontaneous
  Country: US (occurrence: US)
  Receive Date: 20120821
  Receipt Date: 20131021
  Transmission Date: 20141212
  Serious: Yes (Other)
  Sender: FDA-Public Use
  Company Number: US-ASTRAZENECA-2012SE57667

PATIENT
  Age: 60 Year
  Sex: Female

DRUGS (38)
  1. SYMBICORT PMDI [Suspect]
     Dosage: BID
     Route: 055
     Dates: start: 2008
  2. ALEVE [Concomitant]
  3. AMOX POTASSIUM [Concomitant]
  4. AUGMENTIN [Concomitant]
  5. BIAXIN [Concomitant]
  6. CECLOR [Concomitant]
  7. CIPRO [Concomitant]
  8. CEPHALOSPORIN [Concomitant]
  9. PENICILLIN [Concomitant]
  10. DICLOFENIC [Concomitant]
  11. ENTEX [Concomitant]
  12. FLOXIN [Concomitant]
  13. KEFLEX [Concomitant]
  14. LEVAQUIN [Concomitant]
  15. MICRODANTIN [Concomitant]
  16. NYASTATIN [Concomitant]
  17. PREMERIN [Concomitant]
  18. QUINOLONE [Concomitant]
  19. SULFARENTEX [Concomitant]
  20. SUFAR DRUGS [Concomitant]
  21. THEO-DUR [Concomitant]
  22. THEOPHYLLINE [Concomitant]
  23. IODINE [Concomitant]
  24. SOME MEDS WITH HYDROCHLORIDE [Concomitant]
  25. ACYCLOVIR [Concomitant]
  26. CEPHALEXIN MONOHYDRATE [Concomitant]
  27. CLINDAMYCIN WITH STEROID PACK [Concomitant]
  28. DOXYCYCLINE WITH STEROIDS [Concomitant]
  29. ESTRACE [Concomitant]
  30. MICROBID [Concomitant]
  31. NEPROZINE [Concomitant]
  32. PROMETHAZINE PHENYLEPHRINE [Concomitant]
  33. ZITHROMAX [Concomitant]
  34. SPIRIVA [Concomitant]
  35. XOPENEX [Concomitant]
  36. XOPENEX [Concomitant]
  37. MUSINEX [Concomitant]
  38. PREDNIZONE [Concomitant]

REACTIONS (5)
  - Pulmonary oedema [Unknown]
  - Dyspnoea [Unknown]
  - Atrial flutter [Unknown]
  - Nervousness [Unknown]
  - Drug dose omission [Unknown]
